FAERS Safety Report 22742169 (Version 3)
Quarter: 2025Q4

REPORT INFORMATION
  Report Type: Report from Study
  Country: US (occurrence: US)
  Receive Date: 20230724
  Receipt Date: 20251021
  Transmission Date: 20260117
  Serious: No
  Sender: AMGEN
  Company Number: US-AMGEN-USASP2023126928

PATIENT
  Age: 74 Year
  Sex: Male

DRUGS (1)
  1. TAVNEOS [Suspect]
     Active Substance: AVACOPAN
     Indication: Microscopic polyangiitis
     Dosage: UNK
     Route: 065
     Dates: start: 20230411, end: 20230623

REACTIONS (10)
  - Hypertension [Recovered/Resolved]
  - Skin burning sensation [Recovering/Resolving]
  - Cough [Recovering/Resolving]
  - Urticaria [Recovered/Resolved]
  - Diarrhoea [Recovering/Resolving]
  - Eating disorder [Recovered/Resolved]
  - Chest pain [Recovering/Resolving]
  - Swelling [Recovering/Resolving]
  - Headache [Recovering/Resolving]
  - Nausea [Recovered/Resolved]

NARRATIVE: CASE EVENT DATE: 20230101
